FAERS Safety Report 6361265-2 (Version None)
Quarter: 2009Q3

REPORT INFORMATION
  Report Type: 
  Country: None (occurrence: None)
  Receive Date: 20090918
  Receipt Date: 20090914
  Transmission Date: 20100115
  Serious: Yes (Death, Other)
  Sender: FDA-Public Use
  Company Number: JP-BAYER-200910740BYL

PATIENT
  Age: 22 Year
  Sex: Male
  Weight: 44 kg

DRUGS (16)
  1. FLUDARA [Suspect]
     Indication: ACUTE MYELOID LEUKAEMIA
     Dosage: AS USED: 25 MG/M2  UNIT DOSE: 50 MG
     Route: 042
     Dates: start: 20080822, end: 20080826
  2. FLUDARA [Suspect]
     Route: 042
     Dates: start: 20081219, end: 20081219
  3. FLUDARA [Suspect]
     Route: 042
     Dates: start: 20081220, end: 20081220
  4. FLUDARA [Suspect]
     Route: 042
     Dates: start: 20081222, end: 20081224
  5. BUSULFEX [Concomitant]
     Indication: ACUTE MYELOID LEUKAEMIA
     Dosage: AS USED: 3.2 MG/KG
     Route: 042
     Dates: start: 20080822, end: 20080825
  6. CYLOCIDE [Concomitant]
     Indication: ACUTE MYELOID LEUKAEMIA
     Dosage: AS USED: 155 MG
     Route: 041
     Dates: start: 20080815, end: 20080821
  7. CYLOCIDE [Concomitant]
     Dosage: AS USED: 160 MG
     Route: 041
     Dates: start: 20081211, end: 20081217
  8. ALKERAN [Concomitant]
     Indication: ACUTE MYELOID LEUKAEMIA
     Route: 042
     Dates: start: 20081219, end: 20081219
  9. ALKERAN [Concomitant]
     Route: 042
     Dates: start: 20081224, end: 20081224
  10. ALKERAN [Concomitant]
     Route: 042
     Dates: start: 20081222, end: 20081222
  11. DEPAKENE [Concomitant]
     Indication: CONVULSION PROPHYLAXIS
     Dosage: TOTAL DAILY DOSE: 600 MG  UNIT DOSE: 200 MG
     Route: 048
     Dates: start: 20080821, end: 20080826
  12. CONCENTRATED RED CELLS [Concomitant]
     Indication: PACKED RED BLOOD CELL TRANSFUSION
     Route: 042
     Dates: start: 20080822, end: 20081205
  13. PLATELETS [Concomitant]
     Indication: PLATELET TRANSFUSION
     Route: 042
     Dates: start: 20080823, end: 20081205
  14. PROGRAF [Concomitant]
     Route: 041
     Dates: start: 20081227, end: 20081227
  15. PROGRAF [Concomitant]
     Route: 041
     Dates: start: 20081226, end: 20081226
  16. PROGRAF [Concomitant]
     Route: 041
     Dates: start: 20080827, end: 20081014

REACTIONS (7)
  - ACUTE GRAFT VERSUS HOST DISEASE [None]
  - CYSTITIS HAEMORRHAGIC [None]
  - CYTOMEGALOVIRUS VIRAEMIA [None]
  - GASTROINTESTINAL HAEMORRHAGE [None]
  - SEPSIS [None]
  - SEPTIC SHOCK [None]
  - SYSTEMIC CANDIDA [None]
